FAERS Safety Report 24560909 (Version 1)
Quarter: 2024Q4

REPORT INFORMATION
  Report Type: Spontaneous
  Country: US (occurrence: US)
  Receive Date: 20241029
  Receipt Date: 20241029
  Transmission Date: 20250114
  Serious: Yes (Hospitalization)
  Sender: AMGEN
  Company Number: US-AMGEN-USASP2024211607

PATIENT

DRUGS (1)
  1. ENBREL [Suspect]
     Active Substance: ETANERCEPT
     Indication: Product used for unknown indication
     Dosage: UNK
     Route: 065

REACTIONS (6)
  - Colitis ulcerative [Unknown]
  - Back disorder [Unknown]
  - HLA-B*27 positive [Unknown]
  - Fall [Unknown]
  - Joint injury [Unknown]
  - Arthritis [Unknown]
